FAERS Safety Report 19456363 (Version 1)
Quarter: 2021Q2

REPORT INFORMATION
  Report Type: Spontaneous
  Country: US (occurrence: US)
  Receive Date: 20210624
  Receipt Date: 20210624
  Transmission Date: 20210717
  Serious: Yes (Other)
  Sender: FDA-Public Use
  Company Number: US-APOTEX-2021AP014483

PATIENT
  Age: 7 Year
  Sex: Male

DRUGS (2)
  1. BUPROPION. [Concomitant]
     Active Substance: BUPROPION
     Indication: INTERMITTENT EXPLOSIVE DISORDER
     Dosage: 150 MILLIGRAM, QD
     Route: 048
  2. GUANFACINE EXTENDED RELEASE TABLET [Suspect]
     Active Substance: GUANFACINE
     Indication: PRODUCT USED FOR UNKNOWN INDICATION
     Dosage: UNK
     Route: 065

REACTIONS (12)
  - Dark circles under eyes [Recovered/Resolved]
  - Aggression [Recovered/Resolved]
  - Decreased appetite [Recovered/Resolved]
  - Homicidal ideation [Recovered/Resolved]
  - Product substitution issue [Unknown]
  - Lethargy [Recovered/Resolved]
  - Weight decreased [Recovered/Resolved]
  - Suicidal ideation [Recovered/Resolved]
  - Somnolence [Recovered/Resolved]
  - Intentional self-injury [Recovered/Resolved]
  - Withdrawal syndrome [Recovered/Resolved]
  - Recalled product administered [Unknown]
